FAERS Safety Report 7458293-2 (Version None)
Quarter: 2011Q2

REPORT INFORMATION
  Report Type: 
  Country: None (occurrence: None)
  Receive Date: 20110504
  Receipt Date: 20110421
  Transmission Date: 20111010
  Serious: Yes (Hospitalization, Other)
  Sender: FDA-Public Use
  Company Number: US-ELI_LILLY_AND_COMPANY-US201104006686

PATIENT
  Sex: Female

DRUGS (21)
  1. ASPIRIN [Concomitant]
     Route: 065
  2. IRON [Concomitant]
     Route: 065
  3. HYDROCODONE BITARTRATE [Concomitant]
     Indication: PAIN
     Dosage: UNK, PRN
     Route: 065
  4. TRIAMCINOLONE [Concomitant]
     Route: 065
  5. DIOVAN [Concomitant]
     Route: 065
  6. PRILOSEC [Concomitant]
     Route: 065
  7. TYLENOL                                 /SCH/ [Concomitant]
     Route: 065
  8. SENNA [Concomitant]
     Route: 065
  9. ALBUTEROL [Concomitant]
     Route: 065
  10. JANUVIA [Concomitant]
     Route: 065
  11. ZOCOR [Concomitant]
     Route: 065
  12. ADVAIR DISKUS 100/50 [Concomitant]
     Route: 065
  13. LOTEMAX [Concomitant]
     Route: 065
  14. LACRI-LUBE [Concomitant]
     Route: 065
  15. LASIX [Concomitant]
     Route: 065
  16. SINGULAIR [Concomitant]
     Route: 065
  17. PROVENTIL                               /USA/ [Concomitant]
     Route: 065
  18. FORTEO [Suspect]
     Indication: OSTEOPOROSIS
     Dosage: 20 UG, QD
     Route: 065
     Dates: start: 20091110
  19. FORTEO [Suspect]
     Dosage: 20 UG, QD
     Route: 065
     Dates: start: 20091110
  20. CALCIUM W/VITAMIN D                /00188401/ [Concomitant]
     Route: 065
  21. COREG [Concomitant]
     Route: 065

REACTIONS (8)
  - FALL [None]
  - HIP FRACTURE [None]
  - BLOOD PRESSURE DECREASED [None]
  - INJURY [None]
  - GAIT DISTURBANCE [None]
  - BLISTER [None]
  - STRESS [None]
  - IMMUNE SYSTEM DISORDER [None]
